FAERS Safety Report 18585221 (Version 1)
Quarter: 2020Q4

REPORT INFORMATION
  Report Type: Other
  Country: US (occurrence: US)
  Receive Date: 20201207
  Receipt Date: 20201207
  Transmission Date: 20210114
  Serious: Yes (Death)
  Sender: FDA-Public Use
  Company Number: US-ROCHE-2721013

PATIENT
  Sex: Female

DRUGS (1)
  1. OCREVUS [Suspect]
     Active Substance: OCRELIZUMAB
     Indication: RELAPSING MULTIPLE SCLEROSIS
     Dosage: DATE OF TREATMENT: 08/JUN/2018, 31/AUG/2018, 16/JUL/2019, 15/JAN/2020
     Route: 065
     Dates: start: 20170808, end: 20200115

REACTIONS (1)
  - COVID-19 [Fatal]
